FAERS Safety Report 23662254 (Version 1)
Quarter: 2024Q1

REPORT INFORMATION
  Report Type: Spontaneous
  Country: US (occurrence: None)
  Receive Date: 20240321
  Receipt Date: 20240321
  Transmission Date: 20240410
  Serious: Yes (Hospitalization)
  Sender: FDA-Public Use
  Company Number: None

PATIENT

DRUGS (7)
  1. GAMMAGARD LIQUID [Suspect]
     Active Substance: HUMAN IMMUNOGLOBULIN G
     Indication: Systemic lupus erythematosus
     Dosage: OTHER STRENGTH : 30GM/300M;?OTHER FREQUENCY : EVERY 3 WEEKS;?
     Route: 042
     Dates: start: 202312
  2. GAMMAGARD LIQUID [Suspect]
     Active Substance: HUMAN IMMUNOGLOBULIN G
     Dosage: OTHER STRENGTH : 5GM/50ML;?OTHER FREQUENCY : EVERY 3 WEEKS;?
     Route: 042
     Dates: start: 202312
  3. PREDNISONE [Concomitant]
     Active Substance: PREDNISONE
  4. CELLCEPT CAPLET [Concomitant]
  5. HEPARINL/L FLUSH SYRINGE [Concomitant]
  6. ACETAMINOPHEN [Concomitant]
     Active Substance: ACETAMINOPHEN
  7. ACTGAR GEL ADV [Concomitant]

REACTIONS (5)
  - Pyrexia [None]
  - Chest pain [None]
  - Headache [None]
  - Vasculitis [None]
  - Cardiac disorder [None]
